FAERS Safety Report 7543619-1 (Version None)
Quarter: 2011Q2

REPORT INFORMATION
  Report Type: 
  Country: None (occurrence: None)
  Receive Date: 20110613
  Receipt Date: 20030422
  Transmission Date: 20111010
  Serious: Yes (Other)
  Sender: FDA-Public Use
  Company Number: PHFR2003GB00728

PATIENT
  Sex: Female

DRUGS (4)
  1. AMISULPRIDE [Concomitant]
  2. MIRTAZAPINE [Concomitant]
  3. OLANZAPINE [Concomitant]
  4. CLOZAPINE [Suspect]
     Indication: SCHIZOPHRENIA
     Dosage: 100 MG, BID
     Route: 048
     Dates: start: 20030102, end: 20030205

REACTIONS (4)
  - GASTROINTESTINAL HAEMORRHAGE [None]
  - NORMOCHROMIC NORMOCYTIC ANAEMIA [None]
  - DIARRHOEA [None]
  - PYREXIA [None]
